FAERS Safety Report 7972466-1 (Version None)
Quarter: 2011Q4

REPORT INFORMATION
  Report Type: 
  Country: None (occurrence: None)
  Receive Date: 20111213
  Receipt Date: 20111205
  Transmission Date: 20120403
  Serious: No
  Sender: FDA-Public Use
  Company Number: US-BIOGENIDEC-2011BI045996

PATIENT
  Age: 52 Year
  Sex: Female

DRUGS (4)
  1. AVONEX [Suspect]
     Route: 030
  2. AVONEX [Suspect]
     Route: 030
     Dates: end: 20081031
  3. AVONEX [Suspect]
     Indication: MULTIPLE SCLEROSIS
     Route: 030
  4. AVONEX [Suspect]
     Route: 030
     Dates: start: 20081031, end: 20100401

REACTIONS (2)
  - CENTRAL NERVOUS SYSTEM LESION [None]
  - GAIT DISTURBANCE [None]
